FAERS Safety Report 21998190 (Version 2)
Quarter: 2023Q1

REPORT INFORMATION
  Report Type: Spontaneous
  Country: AU (occurrence: AU)
  Receive Date: 20230216
  Receipt Date: 20230313
  Transmission Date: 20230417
  Serious: Yes (Other)
  Sender: FDA-Public Use
  Company Number: AU-COLLEGIUM PHARMACEUTICAL, INC.-20230200135

PATIENT

DRUGS (13)
  1. NUCYNTA ER [Suspect]
     Active Substance: TAPENTADOL HYDROCHLORIDE
     Indication: Calciphylaxis
     Dosage: 100 MILLIGRAM, BID
     Route: 065
     Dates: start: 2021
  2. NUCYNTA ER [Suspect]
     Active Substance: TAPENTADOL HYDROCHLORIDE
     Indication: Pain
  3. OXYCODONE HYDROCHLORIDE [Suspect]
     Active Substance: OXYCODONE HYDROCHLORIDE
     Indication: Calciphylaxis
     Dosage: 20 MILLIGRAM, BID
     Dates: start: 2021
  4. OXYCODONE HYDROCHLORIDE [Suspect]
     Active Substance: OXYCODONE HYDROCHLORIDE
     Indication: Pain
  5. OXYCODONE [Suspect]
     Active Substance: OXYCODONE
     Indication: Calciphylaxis
     Dosage: 5 MILLIGRAM, PRN (EVERY 4 HOURS)
     Route: 065
  6. OXYCODONE [Suspect]
     Active Substance: OXYCODONE
     Indication: Pain
  7. FENTANYL [Suspect]
     Active Substance: FENTANYL
     Indication: Calciphylaxis
     Dosage: 12 MICROGRAM/HOUR
     Route: 062
  8. FENTANYL [Suspect]
     Active Substance: FENTANYL
     Indication: Pain
  9. FENTANYL [Suspect]
     Active Substance: FENTANYL
     Indication: Calciphylaxis
     Dosage: 100 MICROGRAM, PRN (EVERY 2 HOURS)
     Route: 060
  10. FENTANYL [Suspect]
     Active Substance: FENTANYL
     Indication: Pain
  11. PREGABALIN [Suspect]
     Active Substance: PREGABALIN
     Indication: Haemodialysis
     Dosage: 75 MILLIGRAM, 3 TIMES/WEEK
     Route: 065
  12. APIXABAN [Concomitant]
     Active Substance: APIXABAN
     Indication: Atrial fibrillation
     Dosage: UNK, UNKNOWN
     Route: 065
  13. SODIUM THIOSULFATE [Concomitant]
     Active Substance: SODIUM THIOSULFATE
     Indication: Haemodialysis
     Dosage: UNK, UNKNOWN
     Route: 042

REACTIONS (4)
  - Neurotoxicity [Recovered/Resolved]
  - Somnolence [Recovered/Resolved]
  - Confusional state [Recovered/Resolved]
  - Myoclonus [Recovered/Resolved]
